FAERS Safety Report 10529323 (Version 4)
Quarter: 2014Q4

REPORT INFORMATION
  Report Type: Spontaneous
  Country: JP (occurrence: JP)
  Receive Date: 20141021
  Receipt Date: 20141219
  Transmission Date: 20150528
  Serious: Yes (Life-Threatening, Hospitalization)
  Sender: FDA-Public Use
  Company Number: JP-ROCHE-1477119

PATIENT
  Age: 24 Year
  Sex: Male
  Weight: 63 kg

DRUGS (7)
  1. SYMBICORT [Concomitant]
     Active Substance: BUDESONIDE\FORMOTEROL FUMARATE DIHYDRATE
  2. ALVESCO [Concomitant]
     Active Substance: CICLESONIDE
     Route: 065
     Dates: start: 20140228
  3. IPD [Concomitant]
     Active Substance: SUPLATAST TOSILATE
  4. PRANLUKAST [Concomitant]
     Active Substance: PRANLUKAST
  5. THEO-DUR [Concomitant]
     Active Substance: THEOPHYLLINE ANHYDROUS
  6. XOLAIR [Suspect]
     Active Substance: OMALIZUMAB
     Indication: ASTHMA
     Route: 058
     Dates: start: 20140213
  7. XYZAL [Concomitant]
     Active Substance: LEVOCETIRIZINE DIHYDROCHLORIDE
     Route: 065
     Dates: start: 20140526

REACTIONS (2)
  - Hepatic function abnormal [Unknown]
  - Allergic granulomatous angiitis [Not Recovered/Not Resolved]

NARRATIVE: CASE EVENT DATE: 20140618
